FAERS Safety Report 4483457-X (Version None)
Quarter: 2004Q4

REPORT INFORMATION
  Report Type: 
  Country: None (occurrence: None)
  Receive Date: 20041020
  Receipt Date: 20041014
  Transmission Date: 20050328
  Serious: Yes (Hospitalization)
  Sender: FDA-Public Use
  Company Number: 2004-10-0824

PATIENT
  Age: 50 Year
  Sex: Male
  Weight: 93.441 kg

DRUGS (3)
  1. PEG-INTRON [Suspect]
     Indication: HEPATITIS C
     Dosage: 150 MCG QW SUBCUTANEOUS
     Route: 058
     Dates: start: 20040301
  2. REBETOL [Suspect]
     Indication: HEPATITIS C
     Dosage: 1200 MG QW ORAL
     Route: 048
     Dates: start: 20040301
  3. PROZAC [Concomitant]

REACTIONS (2)
  - ANIMAL BITE [None]
  - PNEUMONIA [None]
